FAERS Safety Report 12802328 (Version 1)
Quarter: 2016Q3

REPORT INFORMATION
  Report Type: Spontaneous
  Country: US (occurrence: US)
  Receive Date: 20160930
  Receipt Date: 20160930
  Transmission Date: 20161109
  Serious: Yes (Other)
  Sender: FDA-Public Use
  Company Number: None

PATIENT
  Age: 58 Year
  Sex: Female
  Weight: 67.5 kg

DRUGS (15)
  1. VITAMIN D [Concomitant]
     Active Substance: CHOLECALCIFEROL
  2. CALCIUM [Concomitant]
     Active Substance: CALCIUM
  3. MAGNESIUM [Concomitant]
     Active Substance: MAGNESIUM
  4. B12 INJECTIONS [Concomitant]
  5. CYMBALTA [Suspect]
     Active Substance: DULOXETINE HYDROCHLORIDE
     Indication: FIBROMYALGIA
     Dosage: ?          QUANTITY:1 CAPSULE(S);?
     Route: 048
     Dates: start: 20130824, end: 20160125
  6. COQ 10 [Concomitant]
     Active Substance: UBIDECARENONE
  7. ACETYL L CARNITINE [Concomitant]
  8. MAGNESIUM MALATE [Concomitant]
  9. TURMERIC TEA [Concomitant]
  10. INDOMETHACIN. [Concomitant]
     Active Substance: INDOMETHACIN
  11. BACLOFEN. [Concomitant]
     Active Substance: BACLOFEN
  12. TAURINE [Concomitant]
     Active Substance: TAURINE
  13. BIOTIN [Concomitant]
     Active Substance: BIOTIN
  14. TRAMADOL. [Concomitant]
     Active Substance: TRAMADOL
  15. TYLENOL [Concomitant]
     Active Substance: ACETAMINOPHEN

REACTIONS (16)
  - Weight increased [None]
  - Paraesthesia [None]
  - Anxiety [None]
  - Insomnia [None]
  - Muscle spasms [None]
  - Tremor [None]
  - Drug withdrawal syndrome [None]
  - Nausea [None]
  - Liver function test increased [None]
  - Hyperhidrosis [None]
  - Urinary incontinence [None]
  - Vomiting [None]
  - Suicidal ideation [None]
  - Depression [None]
  - Anger [None]
  - Nightmare [None]

NARRATIVE: CASE EVENT DATE: 20160116
